FAERS Safety Report 20582361 (Version 2)
Quarter: 2022Q4

REPORT INFORMATION
  Report Type: Spontaneous
  Country: CN (occurrence: CN)
  Receive Date: 20220311
  Receipt Date: 20221027
  Transmission Date: 20230112
  Serious: Yes (Other)
  Sender: FDA-Public Use
  Company Number: CN-BAYER-2022A033450

PATIENT
  Age: 82 Year
  Sex: Female
  Weight: 38 kg

DRUGS (1)
  1. AVELOX [Suspect]
     Active Substance: MOXIFLOXACIN HYDROCHLORIDE
     Indication: Pneumonia
     Dosage: 0.3 G, QD
     Route: 048
     Dates: start: 20220215, end: 20220217

REACTIONS (4)
  - Dementia [Recovered/Resolved]
  - Confusional state [Recovered/Resolved]
  - Prescribed underdose [None]
  - Underdose [None]

NARRATIVE: CASE EVENT DATE: 20220215
